FAERS Safety Report 4515194-7 (Version None)
Quarter: 2004Q4

REPORT INFORMATION
  Report Type: 
  Country: None (occurrence: None)
  Receive Date: 20041201
  Receipt Date: 20040517
  Transmission Date: 20050328
  Serious: Yes (Death, Life-Threatening)
  Sender: FDA-Public Use
  Company Number: FR-GLAXOSMITHKLINE-B0333079A

PATIENT
  Age: 37 Week
  Sex: Male
  Weight: 0.7 kg

DRUGS (1)
  1. CLAVENTIN [Suspect]
     Route: 042
     Dates: start: 20040511, end: 20040515

REACTIONS (6)
  - ACCIDENTAL OVERDOSE [None]
  - CONVULSION [None]
  - GENERAL PHYSICAL HEALTH DETERIORATION [None]
  - HYPONATRAEMIA [None]
  - RENAL FAILURE [None]
  - TREMOR [None]
